FAERS Safety Report 17493394 (Version 3)
Quarter: 2020Q1

REPORT INFORMATION
  Report Type: Spontaneous
  Country: US (occurrence: US)
  Receive Date: 20200303
  Receipt Date: 20200305
  Transmission Date: 20200409
  Serious: No
  Sender: FDA-Public Use
  Company Number: US-PFIZER INC-2020093650

PATIENT
  Age: 47 Year
  Sex: Male
  Weight: 109 kg

DRUGS (1)
  1. CHANTIX [Suspect]
     Active Substance: VARENICLINE TARTRATE
     Indication: EX-TOBACCO USER
     Dosage: 0.5 MG, 2X/DAY
     Route: 048
     Dates: start: 201912, end: 20200225

REACTIONS (5)
  - Dizziness [Unknown]
  - Blood pressure increased [Recovered/Resolved]
  - Weight increased [Unknown]
  - Dry mouth [Not Recovered/Not Resolved]
  - Tongue discolouration [Not Recovered/Not Resolved]

NARRATIVE: CASE EVENT DATE: 202002
